FAERS Safety Report 6848826-9 (Version None)
Quarter: 2010Q3

REPORT INFORMATION
  Report Type: 
  Country: None (occurrence: None)
  Receive Date: 20100716
  Receipt Date: 20070911
  Transmission Date: 20110219
  Serious: No
  Sender: FDA-Public Use
  Company Number: US-PFIZER INC-2007076275

PATIENT
  Sex: Female
  Weight: 86.4 kg

DRUGS (7)
  1. CHANTIX [Suspect]
     Indication: SMOKING CESSATION THERAPY
     Route: 048
     Dates: start: 20070701, end: 20070901
  2. FLUOXETINE HCL [Concomitant]
  3. LORAZEPAM [Concomitant]
  4. LIPITOR [Concomitant]
  5. NEXIUM [Concomitant]
  6. LOTREL [Concomitant]
  7. BYETTA [Concomitant]

REACTIONS (4)
  - NASOPHARYNGITIS [None]
  - NAUSEA [None]
  - REGURGITATION [None]
  - VIRAL INFECTION [None]
